FAERS Safety Report 18488675 (Version 3)
Quarter: 2021Q2

REPORT INFORMATION
  Report Type: Spontaneous
  Country: US (occurrence: US)
  Receive Date: 20201111
  Receipt Date: 20210607
  Transmission Date: 20210717
  Serious: No
  Sender: FDA-Public Use
  Company Number: US-SA-2020SA316941

PATIENT
  Age: 17 Year
  Sex: Male

DRUGS (1)
  1. DUPIXENT [Suspect]
     Active Substance: DUPILUMAB
     Indication: DERMATITIS ATOPIC
     Dosage: 300 MG, QOW
     Dates: start: 20190110

REACTIONS (4)
  - Rash [Unknown]
  - Product use issue [Unknown]
  - Injection site swelling [Unknown]
  - Skin disorder [Unknown]

NARRATIVE: CASE EVENT DATE: 20210528
